FAERS Safety Report 8430310-2 (Version None)
Quarter: 2012Q2

REPORT INFORMATION
  Report Type: 
  Country: None (occurrence: None)
  Receive Date: 20120323
  Receipt Date: 20111117
  Transmission Date: 20120825
  Serious: Yes (Hospitalization, Other)
  Sender: FDA-Public Use
  Company Number: 163-21880-11070436

PATIENT
  Age: 81 Year
  Sex: Female

DRUGS (10)
  1. CRESTOR [Concomitant]
  2. VICODIN [Concomitant]
  3. AMLODIPINE [Concomitant]
  4. HYDROCHLOROTHIAZIDE [Concomitant]
  5. REVLIMID [Suspect]
     Indication: MULTIPLE MYELOMA
     Dosage: 20 MG, 2 IN 1 D, PO, 10 MG, 1 IN 1 D, PO
     Route: 048
     Dates: start: 20110101
  6. REVLIMID [Suspect]
     Indication: MULTIPLE MYELOMA
     Dosage: 20 MG, 2 IN 1 D, PO, 10 MG, 1 IN 1 D, PO
     Route: 048
     Dates: start: 20110201
  7. LEVOTHYROXINE SODIUM [Concomitant]
  8. DEXAMETHASONE [Concomitant]
  9. LISINOPRIL [Concomitant]
  10. CALCIUM PLUS VITAMIN D (CALCIUM D3) [Concomitant]

REACTIONS (4)
  - PNEUMONIA [None]
  - WHITE BLOOD CELL COUNT DECREASED [None]
  - RENAL FAILURE ACUTE [None]
  - NEUTROPHIL COUNT DECREASED [None]
